FAERS Safety Report 14911503 (Version 2)
Quarter: 2018Q3

REPORT INFORMATION
  Report Type: Report from Study
  Country: US (occurrence: US)
  Receive Date: 20180518
  Receipt Date: 20180825
  Transmission Date: 20181010
  Serious: No
  Sender: FDA-Public Use
  Company Number: PHEH2018US019215

PATIENT
  Sex: Male

DRUGS (1)
  1. GILENYA [Suspect]
     Active Substance: FINGOLIMOD HYDROCHLORIDE
     Indication: PRODUCT USED FOR UNKNOWN INDICATION
     Dosage: 0.5 MG, QD
     Route: 048
     Dates: start: 20171117

REACTIONS (7)
  - Anger [Unknown]
  - Vitamin D decreased [Unknown]
  - Dizziness [Unknown]
  - Headache [Unknown]
  - Flatulence [Unknown]
  - Depression [Unknown]
  - Constipation [Unknown]
